FAERS Safety Report 26139598 (Version 1)
Quarter: 2025Q4

REPORT INFORMATION
  Report Type: Report from Study
  Country: US (occurrence: US)
  Receive Date: 20251210
  Receipt Date: 20251210
  Transmission Date: 20260117
  Serious: Yes (Hospitalization)
  Sender: ABBVIE
  Company Number: US-ABBVIE-6578131

PATIENT
  Age: 63 Year
  Sex: Female

DRUGS (1)
  1. SKYRIZI [Suspect]
     Active Substance: RISANKIZUMAB-RZAA
     Indication: Psoriasis
     Dosage: STRENGTH:150MG/ML
     Route: 058
     Dates: start: 20241227

REACTIONS (3)
  - Hernia [Unknown]
  - Fall [Unknown]
  - Fibula fracture [Unknown]

NARRATIVE: CASE EVENT DATE: 20250101
